FAERS Safety Report 17004712 (Version 3)
Quarter: 2019Q4

REPORT INFORMATION
  Report Type: Spontaneous
  Country: US (occurrence: US)
  Receive Date: 20191107
  Receipt Date: 20191111
  Transmission Date: 20200122
  Serious: No
  Sender: FDA-Public Use
  Company Number: US-PFIZER INC-2019478205

PATIENT
  Age: 56 Year
  Sex: Male
  Weight: 65.76 kg

DRUGS (2)
  1. VIAGRA [Suspect]
     Active Substance: SILDENAFIL CITRATE
     Indication: ERECTILE DYSFUNCTION
     Dosage: 100 MG, UNK
  2. VIAGRA [Suspect]
     Active Substance: SILDENAFIL CITRATE
     Dosage: 200 MG, UNK (TOOK 2 100 MG BY MOUTH)

REACTIONS (2)
  - Drug ineffective [Unknown]
  - Premature ejaculation [Unknown]

NARRATIVE: CASE EVENT DATE: 201910
